FAERS Safety Report 5514399-6 (Version None)
Quarter: 2007Q4

REPORT INFORMATION
  Report Type: 
  Country: None (occurrence: None)
  Receive Date: 20071113
  Receipt Date: 20070504
  Transmission Date: 20080405
  Serious: No
  Sender: FDA-Public Use
  Company Number: A0650499A

PATIENT
  Sex: Female
  Weight: 68.2 kg

DRUGS (14)
  1. COREG [Suspect]
     Indication: DRUG USE FOR UNKNOWN INDICATION
     Route: 065
  2. OMACOR [Suspect]
     Indication: DRUG USE FOR UNKNOWN INDICATION
     Dosage: 1G TWICE PER DAY
     Route: 048
     Dates: start: 20070316
  3. NOVOLOG [Concomitant]
  4. RYTHMOL [Concomitant]
  5. FUROSEMIDE [Concomitant]
  6. COZAAR [Concomitant]
  7. FOLIC ACID [Concomitant]
  8. SYNTHROID [Concomitant]
  9. TRICOR [Concomitant]
  10. ASPIRIN [Concomitant]
  11. CALCIUM [Concomitant]
  12. VITAMIN D [Concomitant]
  13. MULTI-VITAMIN [Concomitant]
  14. IRON SUPPLEMENT [Concomitant]

REACTIONS (1)
  - BLOOD GLUCOSE INCREASED [None]
